FAERS Safety Report 7400059-3 (Version None)
Quarter: 2011Q2

REPORT INFORMATION
  Report Type: 
  Country: None (occurrence: None)
  Receive Date: 20110407
  Receipt Date: 20110401
  Transmission Date: 20111010
  Serious: Yes (Other)
  Sender: FDA-Public Use
  Company Number: DE-PFIZER INC-2011072435

PATIENT
  Age: 62 Year
  Sex: Male

DRUGS (1)
  1. LYRICA [Suspect]
     Indication: INTERVERTEBRAL DISC DISORDER
     Dosage: 75 MG, UNK
     Dates: start: 20110325

REACTIONS (1)
  - BLOOD GLUCOSE INCREASED [None]
